FAERS Safety Report 6657077-2 (Version None)
Quarter: 2010Q1

REPORT INFORMATION
  Report Type: 
  Country: None (occurrence: None)
  Receive Date: 20100330
  Receipt Date: 20100318
  Transmission Date: 20100710
  Serious: Yes (Hospitalization)
  Sender: FDA-Public Use
  Company Number: US-WYE-H14143710

PATIENT
  Age: 79 Year
  Sex: Male
  Weight: 95.5 kg

DRUGS (3)
  1. TORISEL [Suspect]
     Indication: MANTLE CELL LYMPHOMA
     Dosage: 15 MG (TOTAL DOSE ADMINISTERED THE 4TH COURSE)
     Route: 042
     Dates: start: 20090727
  2. RITUXIMAB [Suspect]
     Indication: MANTLE CELL LYMPHOMA
     Dosage: 850 MG (TOTAL DOSE ADMINISTERED THE 4TH COURSE)
     Route: 065
     Dates: start: 20090727
  3. CLADRIBINE [Suspect]
     Indication: MANTLE CELL LYMPHOMA
     Dosage: 55 MG (TOTAL DOSE ADMINISTERED THE 4TH COURSE)
     Route: 065
     Dates: start: 20090727

REACTIONS (2)
  - ACUTE RESPIRATORY FAILURE [None]
  - PNEUMONITIS [None]
